FAERS Safety Report 19139908 (Version 1)
Quarter: 2021Q2

REPORT INFORMATION
  Report Type: Report from Study
  Country: BR (occurrence: BR)
  Receive Date: 20210415
  Receipt Date: 20210415
  Transmission Date: 20210717
  Serious: Yes (Other)
  Sender: FDA-Public Use
  Company Number: NVSC2021BR081782

PATIENT
  Age: 37 Year
  Sex: Female

DRUGS (1)
  1. COSENTYX [Suspect]
     Active Substance: SECUKINUMAB
     Indication: PSORIASIS
     Dosage: 300 MG, UNKNOWN
     Route: 065
     Dates: start: 20191106

REACTIONS (10)
  - Sensitive skin [Recovered/Resolved]
  - Skin necrosis [Recovered/Resolved]
  - Skin atrophy [Recovered/Resolved]
  - Product dose omission issue [Unknown]
  - Limb injury [Recovered/Resolved with Sequelae]
  - Pain [Recovering/Resolving]
  - Psoriasis [Recovered/Resolved]
  - Dry skin [Recovered/Resolved]
  - Contusion [Recovered/Resolved]
  - Accident [Unknown]

NARRATIVE: CASE EVENT DATE: 202009
